FAERS Safety Report 15988230 (Version 3)
Quarter: 2019Q2

REPORT INFORMATION
  Report Type: Spontaneous
  Country: US (occurrence: US)
  Receive Date: 20190221
  Receipt Date: 20190415
  Transmission Date: 20190711
  Serious: No
  Sender: FDA-Public Use
  Company Number: US-TEVA-2019-US-1013132

PATIENT
  Sex: Female
  Weight: 68 kg

DRUGS (2)
  1. CLARAVIS [Suspect]
     Active Substance: ISOTRETINOIN
     Dates: start: 20181004
  2. MYORISAN [Suspect]
     Active Substance: ISOTRETINOIN
     Indication: ACNE
     Dosage: 40MG FIRST MONTH, THEN 60MG/DAY.
     Dates: start: 20180830, end: 20190114

REACTIONS (2)
  - Depression [Recovered/Resolved]
  - Mood swings [Recovered/Resolved]
